FAERS Safety Report 6847638-X (Version None)
Quarter: 2010Q3

REPORT INFORMATION
  Report Type: 
  Country: None (occurrence: None)
  Receive Date: 20100716
  Receipt Date: 20100702
  Transmission Date: 20110219
  Serious: Yes (Other)
  Sender: FDA-Public Use
  Company Number: PHHY2010US44108

PATIENT
  Sex: Female

DRUGS (21)
  1. ZOMETA [Suspect]
     Indication: MULTIPLE MYELOMA
     Route: 042
  2. REVLIMID [Concomitant]
  3. TPN ELECTROLYTES IN PLASTIC CONTAINER [Concomitant]
  4. LEVOTHYROXINE SODIUM [Concomitant]
  5. ALLOPURINOL [Concomitant]
  6. VITAMIN C [Concomitant]
  7. INDOMETHACIN [Concomitant]
  8. TOPROL-XL [Concomitant]
  9. PREVACID [Concomitant]
  10. GLUCOSAMINE [Concomitant]
  11. VIACTIV [Concomitant]
  12. DECADRON [Concomitant]
  13. URSODIOL [Concomitant]
  14. COLACE [Concomitant]
  15. VITAMIN D [Concomitant]
  16. CLARITIN [Concomitant]
  17. IRON [Concomitant]
  18. AUGMENTIN '125' [Concomitant]
  19. LASIX [Concomitant]
  20. POTASSIUM CHLORIDE [Concomitant]
  21. THALIDOMIDE [Concomitant]

REACTIONS (3)
  - BLOOD GLUCOSE DECREASED [None]
  - COLOSTOMY [None]
  - FISTULA [None]
